FAERS Safety Report 23791053 (Version 1)
Quarter: 2024Q2

REPORT INFORMATION
  Report Type: Spontaneous
  Country: ES (occurrence: GB)
  Receive Date: 20240427
  Receipt Date: 20240427
  Transmission Date: 20240716
  Serious: Yes (Life-Threatening, Hospitalization, Other)
  Sender: FDA-Public Use
  Company Number: GB-Breckenridge Pharmaceutical, Inc.-2154005

PATIENT
  Age: 24 Year
  Sex: Female
  Weight: 49 kg

DRUGS (7)
  1. DULOXETINE [Suspect]
     Active Substance: DULOXETINE
     Indication: Depression
     Route: 048
  2. TOPIRAMATE [Concomitant]
     Active Substance: TOPIRAMATE
  3. MEPROBAMATE [Concomitant]
     Active Substance: MEPROBAMATE
  4. ASPIRIN [Concomitant]
     Active Substance: ASPIRIN
  5. IVABRADINE [Concomitant]
     Active Substance: IVABRADINE
  6. ZOLPIDEM [Concomitant]
     Active Substance: ZOLPIDEM TARTRATE
  7. CLOBAZAM [Concomitant]
     Active Substance: CLOBAZAM

REACTIONS (5)
  - Deep vein thrombosis [Unknown]
  - Nail disorder [Unknown]
  - Bone pain [Recovered/Resolved]
  - Pain in extremity [Recovered/Resolved]
  - Joint stiffness [Unknown]
